FAERS Safety Report 5389900-6 (Version None)
Quarter: 2007Q3

REPORT INFORMATION
  Report Type: 
  Country: None (occurrence: None)
  Receive Date: 20070716
  Receipt Date: 20070716
  Transmission Date: 20080115
  Serious: No
  Sender: FDA-Public Use
  Company Number: None

PATIENT
  Sex: Male
  Weight: 68.4932 kg

DRUGS (1)
  1. PRILOSEC OTC [Suspect]
     Indication: GASTROOESOPHAGEAL REFLUX DISEASE
     Dosage: ONE PILL  PER 24 HRS.  PO
     Route: 048

REACTIONS (3)
  - ASTHENIA [None]
  - EYE DISORDER [None]
  - FEELING ABNORMAL [None]
